FAERS Safety Report 20110685 (Version 1)
Quarter: 2021Q4

REPORT INFORMATION
  Report Type: Spontaneous
  Country: JP (occurrence: JP)
  Receive Date: 20211124
  Receipt Date: 20211124
  Transmission Date: 20220304
  Serious: Yes (Other)
  Sender: FDA-Public Use
  Company Number: JP-TAKEDA-2021TUS074421

PATIENT
  Sex: Female

DRUGS (1)
  1. LIALDA [Suspect]
     Active Substance: MESALAMINE
     Indication: Gastrointestinal disorder
     Dosage: 2400 MILLIGRAM, QD
     Route: 048
     Dates: start: 2017

REACTIONS (9)
  - Biliary dilatation [Unknown]
  - Cough [Unknown]
  - Lung disorder [Unknown]
  - Pruritus [Recovering/Resolving]
  - Gallbladder polyp [Unknown]
  - Back pain [Unknown]
  - Neoplasm [Unknown]
  - Oedema [Unknown]
  - Face oedema [Unknown]
